FAERS Safety Report 5419528-0 (Version None)
Quarter: 2007Q3

REPORT INFORMATION
  Report Type: 
  Country: None (occurrence: None)
  Receive Date: 20070817
  Receipt Date: 20070817
  Transmission Date: 20080115
  Serious: Yes (Hospitalization, Disabling)
  Sender: FDA-Public Use
  Company Number: None

PATIENT
  Age: 34 Year
  Sex: Male
  Weight: 95 kg

DRUGS (3)
  1. CLENBUTEROL 4MG BID [Suspect]
     Dosage: 4MG PO BID
     Route: 048
     Dates: start: 20070701, end: 20070801
  2. TESTOSTERONE CYPIONATE [Suspect]
     Dates: start: 20070601
  3. DRIXORAL [Concomitant]

REACTIONS (4)
  - CARDIAC ENZYMES INCREASED [None]
  - RENAL ATROPHY [None]
  - RENAL FAILURE CHRONIC [None]
  - SCROTAL PAIN [None]
